FAERS Safety Report 11980284 (Version 2)
Quarter: 2016Q1

REPORT INFORMATION
  Report Type: Spontaneous
  Country: US (occurrence: US)
  Receive Date: 20160129
  Receipt Date: 20160219
  Transmission Date: 20160526
  Serious: Yes (Hospitalization, Other)
  Sender: FDA-Public Use
  Company Number: US-PFIZER INC-2016049733

PATIENT
  Age: 49 Year
  Sex: Female

DRUGS (15)
  1. PRISTIQ EXTENDED RELEASE [Suspect]
     Active Substance: DESVENLAFAXINE SUCCINATE
     Indication: DEPRESSION
     Dosage: 50 MG, 1X/DAY
     Dates: start: 2006
  2. DIAZEPAM. [Suspect]
     Active Substance: DIAZEPAM
     Indication: PANIC ATTACK
     Dosage: UNK, 3X/DAY (0.05 (1) 3 TIME DAY)
     Dates: start: 20010531
  3. PRE NATAL FORMULA [Concomitant]
     Indication: VITAMIN SUPPLEMENTATION
     Dosage: UNK, 1X/DAY (1 DAY)
  4. 5-HTP [Concomitant]
     Active Substance: OXITRIPTAN
     Dosage: UNK, 1X/DAY (1 DAY)
  5. CRANBERRY. [Concomitant]
     Active Substance: CRANBERRY
     Indication: VITAMIN SUPPLEMENTATION
     Dosage: UNK, 1X/DAY (1 DAY)
  6. GERITOL [Concomitant]
     Active Substance: MINERALS\VITAMINS
     Dosage: UNK, 1X/DAY (1 DAY)
  7. TRAMADOL. [Suspect]
     Active Substance: TRAMADOL
     Indication: PANIC DISORDER
     Dosage: 50 MG, EVERY 4 HRS
     Dates: start: 20130626
  8. PRILOSEC [Concomitant]
     Active Substance: OMEPRAZOLE MAGNESIUM
     Dosage: UNK, 1X/DAY (1 DAILY)
  9. ELAVIL [Suspect]
     Active Substance: AMITRIPTYLINE HYDROCHLORIDE
     Indication: HEADACHE
     Dosage: UNK UNK, 1X/DAY (50-75MG; 1 PER NIGHT)
     Dates: start: 201405
  10. CRESTOR [Concomitant]
     Active Substance: ROSUVASTATIN CALCIUM
     Dosage: 20 MG, 1X/DAY (1 PER NIGHT)
  11. ELAVIL [Suspect]
     Active Substance: AMITRIPTYLINE HYDROCHLORIDE
     Indication: SLEEP DISORDER
  12. GABAPENTIN. [Suspect]
     Active Substance: GABAPENTIN
     Dosage: 600 MG, 2X/DAY
     Dates: start: 201510
  13. HYDROCODONE [Suspect]
     Active Substance: HYDROCODONE
     Indication: PAIN
     Dosage: UNK UNK, 3X/DAY (1 EVERY 3 PER DAY; 10-325)
     Dates: start: 201511
  14. COQ 10 [Concomitant]
     Active Substance: UBIDECARENONE
     Dosage: UNK, 1X/DAY (1 DAILY)
  15. KRILL OIL [Concomitant]
     Active Substance: DIETARY SUPPLEMENT
     Dosage: UNK, 1X/DAY (1 DAY)

REACTIONS (4)
  - Condition aggravated [Not Recovered/Not Resolved]
  - Back pain [Not Recovered/Not Resolved]
  - Lumbar spinal stenosis [Not Recovered/Not Resolved]
  - Exostosis [Not Recovered/Not Resolved]

NARRATIVE: CASE EVENT DATE: 201306
